FAERS Safety Report 8533228 (Version 2)
Quarter: 2013Q2

REPORT INFORMATION
  Report Type: Spontaneous
  Country: US (occurrence: None)
  Receive Date: 20120327
  Receipt Date: 20120709
  Transmission Date: 20140414
  Serious: Yes (Disabling, Other)
  Sender: FDA-Public Use
  Company Number: PHHY2011US16858

PATIENT
  Age: 68 Year
  Sex: Male
  Weight: 129 kg

DRUGS (16)
  1. GLEEVEC [Suspect]
     Indication: ACUTE MYELOID LEUKAEMIA
     Dosage: 400 MG, QD, ORAL
     Route: 048
     Dates: start: 20101011
  2. ACTOS (PIOGLITAZONE, PIOGLITAZONE HYDROCHLORIDE) [Concomitant]
  3. ALLOPURINOL [Concomitant]
  4. ANDROGEL [Concomitant]
  5. ARTHROTEC [Concomitant]
  6. ASPIRIN (ACETYLSALICYLIC ACID) [Concomitant]
  7. FOLBEE PLUS [Concomitant]
  8. FUROSEMIDE (FUROSEMIDE) [Concomitant]
  9. GABAPENTIN (GABAPENTIN) [Concomitant]
  10. HYDROCODONE BITARTRATE AND ACETAMINOPHEN [Concomitant]
  11. LISINOPRIL (LISINOPRIL) [Concomitant]
  12. LOVASTATIN [Concomitant]
  13. OMEPRAZOLE [Concomitant]
  14. PERCOCET [Concomitant]
  15. POTASSIUM CHLORIDE [Concomitant]
  16. PROMETHAZINE HYDROCHLORIDE [Concomitant]

REACTIONS (6)
  - DIZZINESS [None]
  - NAUSEA [None]
  - DIARRHOEA [None]
  - VOMITING [None]
  - Swelling [None]
  - Muscle spasms [None]
